FAERS Safety Report 13397503 (Version 2)
Quarter: 2017Q2

REPORT INFORMATION
  Report Type: Spontaneous
  Country: US (occurrence: US)
  Receive Date: 20170403
  Receipt Date: 20170629
  Transmission Date: 20170830
  Serious: Yes (Disabling, Other)
  Sender: FDA-Public Use
  Company Number: US-AVEDRO-AVE-2017-0036-AE

PATIENT
  Age: 13 Year
  Sex: Male
  Weight: 46.76 kg

DRUGS (8)
  1. OFLOXACIN. [Concomitant]
     Active Substance: OFLOXACIN
     Indication: ANTIBIOTIC THERAPY
     Dosage: 0.3%, 1 DROP FOUR TIMES PER DAY INTO LEFT EYE
     Route: 047
     Dates: start: 20161215, end: 20161219
  2. KXL SYSTEM [Suspect]
     Active Substance: DEVICE
     Indication: KERATOCONUS
     Route: 047
     Dates: start: 20161216, end: 20161216
  3. PROPARACAINE HYDROCHLORIDE. [Concomitant]
     Active Substance: PROPARACAINE HYDROCHLORIDE
     Indication: ANAESTHETIC PREMEDICATION
     Dosage: 0.5%, 1 DROP INTO LEFT EYE PRIOR TO THE PROCEDURE AND THEN AS NEEDED FOR COMFORT DURING THE PROCEDUR
     Route: 047
     Dates: start: 20161216, end: 20161216
  4. PHOTREXA [Suspect]
     Active Substance: RIBOFLAVIN 5^-PHOSPHATE SODIUM
     Indication: KERATOCONUS
     Dosage: 2 DROPS EVERY 5-10 SECONDS
     Route: 047
     Dates: start: 20161216, end: 20161216
  5. PREDNISOLONE ACETATE. [Concomitant]
     Active Substance: PREDNISOLONE ACETATE
     Indication: ANTIINFLAMMATORY THERAPY
     Dosage: 1%, 1 DROP FOUR TIMES PER DAY INTO LEFT EYE
     Route: 047
     Dates: start: 20161216, end: 20161219
  6. PHOTREXA VISCOUS [Suspect]
     Active Substance: RIBOFLAVIN 5^-PHOSPHATE SODIUM
     Indication: KERATOCONUS
     Dosage: EVERY 2 MINUTES FOR 60 MINUTES
     Route: 047
     Dates: start: 20161216, end: 20161216
  7. ALBUTEROL INHALER [Concomitant]
     Active Substance: ALBUTEROL
     Indication: ASTHMA
     Dosage: 2 PUFFS EVERY 4-6 HOURS AS NEEDED
     Dates: start: 2010
  8. ALPRAZOLAM. [Concomitant]
     Active Substance: ALPRAZOLAM
     Indication: ANXIETY
     Dosage: 0.25MG ONCE, 30 MINUTES PRIOR TO PROCEDURE
     Route: 048
     Dates: start: 20161216, end: 20161216

REACTIONS (15)
  - Ulcerative keratitis [Recovered/Resolved]
  - Hypopyon [Recovered/Resolved]
  - Corneal neovascularisation [Unknown]
  - Corneal epithelium defect [Recovered/Resolved]
  - Corneal deposits [Recovered/Resolved]
  - Corneal opacity [Unknown]
  - Ulcerative keratitis [Recovered/Resolved]
  - Flat anterior chamber of eye [Recovered/Resolved]
  - Corneal infiltrates [Recovered/Resolved]
  - Corneal oedema [Recovered/Resolved]
  - Corneal opacity [Unknown]
  - Visual impairment [Recovering/Resolving]
  - Staphylococcal infection [Recovered/Resolved]
  - Cataract subcapsular [Unknown]
  - Corneal scar [Unknown]

NARRATIVE: CASE EVENT DATE: 201612
